FAERS Safety Report 15386202 (Version 1)
Quarter: 2018Q3

REPORT INFORMATION
  Report Type: Spontaneous
  Country: US (occurrence: US)
  Receive Date: 20180914
  Receipt Date: 20180914
  Transmission Date: 20181010
  Serious: No
  Sender: FDA-Public Use
  Company Number: US-CELGENEUS-USA-20180904515

PATIENT
  Age: 53 Year
  Sex: Female

DRUGS (2)
  1. OTEZLA [Suspect]
     Active Substance: APREMILAST
     Indication: PSORIATIC ARTHROPATHY
     Dosage: 40 MILLIGRAM
     Route: 048
     Dates: start: 20150401
  2. OTEZLA [Suspect]
     Active Substance: APREMILAST
     Indication: PSORIASIS

REACTIONS (3)
  - Headache [Unknown]
  - Abdominal pain upper [Unknown]
  - Diarrhoea [Unknown]

NARRATIVE: CASE EVENT DATE: 20150401
